FAERS Safety Report 20230496 (Version 1)
Quarter: 2021Q4

REPORT INFORMATION
  Report Type: Report from Study
  Country: IT (occurrence: IT)
  Receive Date: 20211227
  Receipt Date: 20211227
  Transmission Date: 20220303
  Serious: Yes (Hospitalization)
  Sender: FDA-Public Use
  Company Number: IT-ABBVIE-21K-083-4211268-00

PATIENT
  Age: 69 Year
  Sex: Male

DRUGS (1)
  1. VENETOCLAX [Suspect]
     Active Substance: VENETOCLAX
     Indication: T-cell prolymphocytic leukaemia
     Route: 048
     Dates: start: 202110

REACTIONS (2)
  - Cardiac failure [Unknown]
  - Ascites [Unknown]

NARRATIVE: CASE EVENT DATE: 20210101
